FAERS Safety Report 14213408 (Version 1)
Quarter: 2017Q4

REPORT INFORMATION
  Report Type: Report from Study
  Country: None (occurrence: BR)
  Receive Date: 20171122
  Receipt Date: 20171122
  Transmission Date: 20180321
  Serious: Yes (Hospitalization)
  Sender: FDA-Public Use
  Company Number: BR-ABBVIE-17K-020-2167671-00

PATIENT
  Age: 39 Year
  Sex: Female
  Weight: 85 kg

DRUGS (13)
  1. FAMOTIDINE. [Concomitant]
     Active Substance: FAMOTIDINE
     Indication: CROHN^S DISEASE
  2. ZODEL [Concomitant]
     Indication: ANXIETY
  3. LAMITOR [Concomitant]
     Active Substance: LAMOTRIGINE
     Indication: DEPRESSION
  4. GLUCOSAMINE [Concomitant]
     Active Substance: GLUCOSAMINE
     Indication: OSTEOARTHRITIS
  5. BROMAZEPAM [Concomitant]
     Active Substance: BROMAZEPAM
     Indication: DEPRESSION
  6. PANTOPRAZOLE [Concomitant]
     Active Substance: PANTOPRAZOLE
     Indication: GASTRITIS
  7. HUMIRA [Suspect]
     Active Substance: ADALIMUMAB
     Indication: CROHN^S DISEASE
     Dosage: LOADING DOSE
     Route: 058
     Dates: start: 20151217, end: 20151217
  8. AZATHIOPRINE. [Concomitant]
     Active Substance: AZATHIOPRINE
     Indication: CROHN^S DISEASE
  9. TRAMAL [Concomitant]
     Active Substance: TRAMADOL
     Indication: CROHN^S DISEASE
  10. PREDNISONE. [Concomitant]
     Active Substance: PREDNISONE
     Indication: CROHN^S DISEASE
  11. HUMIRA [Suspect]
     Active Substance: ADALIMUMAB
     Dosage: LOADING DOSE WEEK 1
     Route: 058
     Dates: start: 201512, end: 201512
  12. HUMIRA [Suspect]
     Active Substance: ADALIMUMAB
     Route: 058
  13. GLUCOSAMINE [Concomitant]
     Active Substance: GLUCOSAMINE
     Indication: FIBROMYALGIA

REACTIONS (3)
  - Intestinal haemorrhage [Not Recovered/Not Resolved]
  - Intestinal haemorrhage [Recovered/Resolved]
  - Gastrointestinal oedema [Unknown]

NARRATIVE: CASE EVENT DATE: 20171002
